FAERS Safety Report 21877327 (Version 1)
Quarter: 2023Q1

REPORT INFORMATION
  Report Type: Spontaneous
  Country: GB (occurrence: GB)
  Receive Date: 20230118
  Receipt Date: 20230118
  Transmission Date: 20230417
  Serious: Yes (Disabling, Other)
  Sender: FDA-Public Use
  Company Number: GB-MHRA-MED-202301131727134120-DZFBV

PATIENT
  Age: 58 Year
  Sex: Female

DRUGS (5)
  1. EMPAGLIFLOZIN [Suspect]
     Active Substance: EMPAGLIFLOZIN
     Indication: Type 1 diabetes mellitus
     Dates: start: 20220914, end: 20220930
  2. HUMALOG [Concomitant]
     Active Substance: INSULIN LISPRO
     Indication: Type 1 diabetes mellitus
     Dates: start: 19901105
  3. TOUJEO [Concomitant]
     Active Substance: INSULIN GLARGINE
     Indication: Type 1 diabetes mellitus
     Dates: start: 20200601
  4. LISINOPRIL [Concomitant]
     Active Substance: LISINOPRIL
     Indication: Product used for unknown indication
     Dates: start: 20001227
  5. PRAVASTATIN [Concomitant]
     Active Substance: PRAVASTATIN
     Indication: Blood cholesterol increased
     Dates: start: 20180501

REACTIONS (9)
  - Blood glucose decreased [Recovered/Resolved]
  - Urinary tract infection [Recovered/Resolved with Sequelae]
  - Muscle fatigue [Recovered/Resolved with Sequelae]
  - Thirst [Recovered/Resolved]
  - Bladder pain [Recovering/Resolving]
  - Fatigue [Recovering/Resolving]
  - Dyspnoea [Recovering/Resolving]
  - Abdominal discomfort [Recovered/Resolved]
  - Medication error [Unknown]

NARRATIVE: CASE EVENT DATE: 20220914
